FAERS Safety Report 6035571-5 (Version None)
Quarter: 2009Q1

REPORT INFORMATION
  Report Type: 
  Country: None (occurrence: None)
  Receive Date: 20090113
  Receipt Date: 20090102
  Transmission Date: 20090719
  Serious: No
  Sender: FDA-Public Use
  Company Number: US-ROCHE-599404

PATIENT
  Sex: Female
  Weight: 83.7 kg

DRUGS (3)
  1. ISOTRETINOIN [Suspect]
     Indication: DRUG USE FOR UNKNOWN INDICATION
     Dosage: THE PATIENT WAS DISPENSED ACCUTANE 40 MG CAPSULE ON 02 OCT 2006 AND 19 MAR 2008
     Route: 065
     Dates: start: 20080319, end: 20080911
  2. CONTRACEPTIVE [Concomitant]
     Dosage: FORM: PILL
     Route: 048
  3. VITAMIN [Concomitant]
     Indication: PREGNANCY
     Dosage: DRUG: PRENATAL VITAMINS
     Route: 048
     Dates: start: 20080101

REACTIONS (2)
  - NO ADVERSE EVENT [None]
  - PREGNANCY [None]
